FAERS Safety Report 26124293 (Version 2)
Quarter: 2025Q4

REPORT INFORMATION
  Report Type: Report from Study
  Country: CA (occurrence: CA)
  Receive Date: 20251205
  Receipt Date: 20251215
  Transmission Date: 20260117
  Serious: Yes (Other)
  Sender: ALEXION PHARMACEUTICALS
  Company Number: CA-AstraZeneca-CH-01005825A

PATIENT
  Sex: Male

DRUGS (12)
  1. SOLIRIS [Suspect]
     Active Substance: ECULIZUMAB
     Indication: Atypical haemolytic uraemic syndrome
     Dosage: 900 MILLIGRAM, QW
     Dates: start: 20190506, end: 20190527
  2. SOLIRIS [Suspect]
     Active Substance: ECULIZUMAB
     Dosage: 1200 MILLIGRAM, Q2W
     Dates: start: 20190603, end: 20200504
  3. SOLIRIS [Suspect]
     Active Substance: ECULIZUMAB
     Dosage: 1200 MILLIGRAM, Q2W
     Dates: start: 20201208
  4. SOLIRIS [Suspect]
     Active Substance: ECULIZUMAB
     Dosage: UNK
  5. DAPAGLIFLOZIN [Concomitant]
     Active Substance: DAPAGLIFLOZIN
     Dosage: 5 MILLIGRAM
     Route: 065
  6. DAPAGLIFLOZIN [Concomitant]
     Active Substance: DAPAGLIFLOZIN
     Dosage: 10 MILLIGRAM
     Route: 065
  7. BISOPROLOL [Concomitant]
     Active Substance: BISOPROLOL
     Dosage: 10 MILLIGRAM, QD
     Route: 065
  8. PENICILLIN [Concomitant]
     Active Substance: PENICILLIN
     Dosage: 600 MILLIGRAM, BID
     Route: 065
  9. RAMIPRIL [Concomitant]
     Active Substance: RAMIPRIL
     Dosage: 10 MILLIGRAM, QD
     Route: 065
  10. TERAZOSIN [Concomitant]
     Active Substance: TERAZOSIN HYDROCHLORIDE
     Dosage: 2 MILLIGRAM, QD
     Route: 065
  11. HYDROCHLOROTHIAZIDE [Concomitant]
     Active Substance: HYDROCHLOROTHIAZIDE
     Dosage: 25 MILLIGRAM, QD
     Route: 065
  12. COLCHICINE [Concomitant]
     Active Substance: COLCHICINE
     Dosage: PRN
     Route: 065

REACTIONS (4)
  - Haemoglobin increased [Unknown]
  - Blood creatine phosphokinase increased [Unknown]
  - Aspartate aminotransferase increased [Unknown]
  - Alanine aminotransferase increased [Unknown]
